FAERS Safety Report 11911265 (Version 1)
Quarter: 2016Q1

REPORT INFORMATION
  Report Type: Spontaneous
  Country: US (occurrence: US)
  Receive Date: 20160112
  Receipt Date: 20160112
  Transmission Date: 20160526
  Serious: Yes (Other)
  Sender: FDA-Public Use
  Company Number: US-PROCTER_AND_GAMBLE-GS15043363

PATIENT
  Sex: Female

DRUGS (1)
  1. CREST 3D WHITE GLAMOROUS WHITE [Suspect]
     Active Substance: SODIUM FLUORIDE
     Indication: TOOTH DISCOLOURATION
     Dosage: 1 APPLIC, UNKNOWN FREQUENCY
     Route: 002

REACTIONS (3)
  - Tooth loss [None]
  - Teeth brittle [Not Recovered/Not Resolved]
  - Tooth fracture [Unknown]
